FAERS Safety Report 4896365-7 (Version None)
Quarter: 2006Q1

REPORT INFORMATION
  Report Type: 
  Country: None (occurrence: None)
  Receive Date: 20060126
  Receipt Date: 20060111
  Transmission Date: 20060701
  Serious: Yes (Hospitalization, Other)
  Sender: FDA-Public Use
  Company Number: 2006-00071

PATIENT
  Sex: Female

DRUGS (3)
  1. VELCADE [Suspect]
     Indication: MULTIPLE MYELOMA
     Dosage: 2.40 MG, 2/WEEK, INTRAVENOUS
     Route: 042
     Dates: start: 20051219, end: 20051230
  2. DEXAMETHASONE [Concomitant]
  3. VALTREX [Concomitant]

REACTIONS (1)
  - MONOPLEGIA [None]
